FAERS Safety Report 17979199 (Version 1)
Quarter: 2020Q3

REPORT INFORMATION
  Report Type: Spontaneous
  Country: US (occurrence: US)
  Receive Date: 20200703
  Receipt Date: 20200703
  Transmission Date: 20201103
  Serious: Yes (Hospitalization, Other)
  Sender: FDA-Public Use
  Company Number: US-PFIZER INC-2020254139

PATIENT
  Age: 68 Year
  Sex: Male

DRUGS (4)
  1. MORPHINE SULFATE. [Suspect]
     Active Substance: MORPHINE SULFATE
     Dosage: UNK (INTERMITTENT INJECTIONS OF INTRATHECAL MORPHINE THROUGH A TEMPORARY PERCUTANEOUS CATHETER)
     Route: 037
  2. MORPHINE SULFATE. [Suspect]
     Active Substance: MORPHINE SULFATE
     Dosage: 10 MG, 2X/DAY (VIA A PERCUTANEOUS CATHETER)
     Route: 008
  3. MORPHINE SULFATE. [Suspect]
     Active Substance: MORPHINE SULFATE
     Indication: ANALGESIC THERAPY
     Dosage: ADMINISTERED VIA INFUSION PUMP, TOTALLING 40?50 MG/DAY
     Route: 042
  4. MORPHINE SULFATE. [Suspect]
     Active Substance: MORPHINE SULFATE
     Dosage: 20 MG, DAILY (BY AMBULATORY INFUSION PUMP)
     Route: 008

REACTIONS (11)
  - Vomiting [Unknown]
  - Therapeutic product effect incomplete [Recovered/Resolved]
  - Decreased appetite [Unknown]
  - Nausea [Unknown]
  - Abdominal distension [Unknown]
  - Meningitis [Recovered/Resolved]
  - Product use issue [Unknown]
  - Narcotic bowel syndrome [Unknown]
  - Mental impairment [Unknown]
  - Memory impairment [Unknown]
  - Off label use [Unknown]
